FAERS Safety Report 9353199 (Version 1)
Quarter: 2013Q2

REPORT INFORMATION
  Report Type: Spontaneous
  Country: US (occurrence: None)
  Receive Date: 20130617
  Receipt Date: 20130617
  Transmission Date: 20140414
  Serious: Yes (Hospitalization, Other)
  Sender: FDA-Public Use
  Company Number: None

PATIENT
  Sex: Female
  Weight: 65.77 kg

DRUGS (1)
  1. CYMBALTA [Suspect]
     Indication: PAIN
     Dosage: 1 CAP.
     Dates: start: 20060617, end: 20130511

REACTIONS (19)
  - Nausea [None]
  - Anxiety [None]
  - Hyperhidrosis [None]
  - Hypersensitivity [None]
  - Sneezing [None]
  - Pruritus [None]
  - Asthenia [None]
  - Fatigue [None]
  - Malaise [None]
  - Dizziness [None]
  - Abdominal pain [None]
  - Pain [None]
  - Arthritis [None]
  - Migraine [None]
  - Agitation [None]
  - Nervousness [None]
  - Confusional state [None]
  - Impaired driving ability [None]
  - Hepatic steatosis [None]
